FAERS Safety Report 19972621 (Version 2)
Quarter: 2021Q4

REPORT INFORMATION
  Report Type: Spontaneous
  Country: US (occurrence: US)
  Receive Date: 20211020
  Receipt Date: 20211025
  Transmission Date: 20220303
  Serious: No
  Sender: FDA-Public Use
  Company Number: NVSC2021US239233

PATIENT

DRUGS (1)
  1. VOLTAREN [Suspect]
     Active Substance: DICLOFENAC SODIUM
     Indication: Product used for unknown indication
     Dosage: UNK
     Route: 065

REACTIONS (7)
  - Nasal discomfort [Unknown]
  - Oral discomfort [Unknown]
  - Eye irritation [Unknown]
  - Throat irritation [Unknown]
  - Insomnia [Unknown]
  - Feeling abnormal [Unknown]
  - Product administered at inappropriate site [Unknown]
